FAERS Safety Report 9087598 (Version 1)
Quarter: 2013Q1

REPORT INFORMATION
  Report Type: Spontaneous
  Country: JP (occurrence: JP)
  Receive Date: 20130201
  Receipt Date: 20130201
  Transmission Date: 20140127
  Serious: No
  Sender: FDA-Public Use
  Company Number: JP-JNJFOC-20121210990

PATIENT
  Age: 64 Year
  Sex: Male

DRUGS (1)
  1. DUROTEP MT [Suspect]
     Indication: CANCER PAIN
     Dosage: 3 PATCHES OF 50 UG/HR
     Route: 062
     Dates: start: 20121211, end: 20121212

REACTIONS (3)
  - Nausea [Recovered/Resolved]
  - Dizziness [Recovered/Resolved]
  - Drug prescribing error [Unknown]
